FAERS Safety Report 10391536 (Version 2)
Quarter: 2014Q3

REPORT INFORMATION
  Report Type: Spontaneous
  Country: US (occurrence: US)
  Receive Date: 20140818
  Receipt Date: 20140818
  Transmission Date: 20150326
  Serious: Yes (Hospitalization, Other)
  Sender: FDA-Public Use
  Company Number: US-009507513-2010SP018554

PATIENT
  Sex: Female
  Weight: 81.19 kg

DRUGS (1)
  1. NUVARING [Suspect]
     Active Substance: ETHINYL ESTRADIOL\ETONOGESTREL
     Indication: CONTRACEPTION
     Dosage: UNK UNK, QM
     Route: 067
     Dates: start: 200607, end: 20080430

REACTIONS (6)
  - Road traffic accident [Unknown]
  - Aortic arteriosclerosis [Unknown]
  - Pulmonary embolism [Recovered/Resolved]
  - Mitral valve sclerosis [Unknown]
  - Hypersensitivity [Unknown]
  - Hypertension [Unknown]

NARRATIVE: CASE EVENT DATE: 20071004
